FAERS Safety Report 20652019 (Version 1)
Quarter: 2022Q1

REPORT INFORMATION
  Report Type: Spontaneous
  Country: US (occurrence: US)
  Receive Date: 20220330
  Receipt Date: 20220330
  Transmission Date: 20220423
  Serious: No
  Sender: FDA-Public Use
  Company Number: US-Calliditas-2022CAL00016

PATIENT
  Age: 41 Year
  Sex: Female

DRUGS (1)
  1. TARPEYO [Suspect]
     Active Substance: BUDESONIDE
     Indication: IgA nephropathy
     Dosage: 16 MG BY MOUTH ONCE DAILY
     Route: 050
     Dates: start: 20220301

REACTIONS (2)
  - Heart rate increased [Unknown]
  - Dyspnoea [Unknown]
